FAERS Safety Report 10257903 (Version 1)
Quarter: 2014Q2

REPORT INFORMATION
  Report Type: Spontaneous
  Country: US (occurrence: US)
  Receive Date: 20140625
  Receipt Date: 20140625
  Transmission Date: 20141212
  Serious: No
  Sender: FDA-Public Use
  Company Number: US-PFIZER INC-2014170591

PATIENT
  Age: 64 Year
  Sex: Male
  Weight: 80.73 kg

DRUGS (3)
  1. VIAGRA [Suspect]
     Indication: ERECTILE DYSFUNCTION
     Dosage: 50 MG, AS NEEDED
     Route: 048
     Dates: start: 1990
  2. VIAGRA [Suspect]
     Dosage: 150 MG 150 MG (150 MG (TAKING THREE 50MG TABLETS AS NEEDED IN A WEEK AT THE SAME TIME), AS NEEDED
     Route: 048
     Dates: end: 201406
  3. VIAGRA [Suspect]
     Dosage: 100 MG, AS NEEDED
     Route: 048
     Dates: start: 201406

REACTIONS (2)
  - Drug ineffective [Unknown]
  - Extra dose administered [Unknown]
